FAERS Safety Report 24527074 (Version 2)
Quarter: 2024Q4

REPORT INFORMATION
  Report Type: Spontaneous
  Country: FR (occurrence: FR)
  Receive Date: 20241021
  Receipt Date: 20241029
  Transmission Date: 20250114
  Serious: Yes (Hospitalization, Other)
  Sender: BRISTOL-MYERS SQUIBB COMPANY
  Company Number: FR-002147023-NVSC2024FR197635

PATIENT
  Sex: Male

DRUGS (4)
  1. ELIQUIS [Suspect]
     Active Substance: APIXABAN
     Indication: Atrial fibrillation
     Dosage: UNK
     Dates: start: 202311
  2. SECUKINUMAB [Suspect]
     Active Substance: SECUKINUMAB
     Indication: Psoriatic arthropathy
     Dosage: 300 MG
     Dates: start: 202409
  3. SECUKINUMAB [Suspect]
     Active Substance: SECUKINUMAB
     Indication: SAPHO syndrome
  4. SECUKINUMAB [Suspect]
     Active Substance: SECUKINUMAB

REACTIONS (10)
  - Confusional state [Recovered/Resolved]
  - Seizure [Unknown]
  - Fatigue [Recovered/Resolved]
  - Somnolence [Not Recovered/Not Resolved]
  - Slow response to stimuli [Not Recovered/Not Resolved]
  - Disorientation [Unknown]
  - Headache [Unknown]
  - Vomiting [Unknown]
  - Learning disorder [Unknown]
  - Disturbance in attention [Unknown]

NARRATIVE: CASE EVENT DATE: 20240901
